FAERS Safety Report 10029057 (Version 2)
Quarter: 2014Q1

REPORT INFORMATION
  Report Type: Spontaneous
  Country: AU (occurrence: AU)
  Receive Date: 20140321
  Receipt Date: 20140321
  Transmission Date: 20141002
  Serious: Yes (Hospitalization, Other)
  Sender: FDA-Public Use
  Company Number: AU-ASTRAZENECA-2013SE14448

PATIENT
  Age: 56 Year
  Sex: Male

DRUGS (6)
  1. BRILINTA [Suspect]
     Route: 048
  2. ASPIRIN [Suspect]
  3. DILTIAZEM [Concomitant]
  4. ROSUVASTATIN [Concomitant]
  5. FLUTICASUNE [Concomitant]
  6. SALMETEROL [Concomitant]

REACTIONS (3)
  - Acute lung injury [Recovering/Resolving]
  - Pulmonary haemorrhage [Not Recovered/Not Resolved]
  - Haemoptysis [Recovered/Resolved]
